FAERS Safety Report 9840266 (Version 1)
Quarter: 2014Q1

REPORT INFORMATION
  Report Type: Spontaneous
  Country: FR (occurrence: FR)
  Receive Date: 20140124
  Receipt Date: 20140124
  Transmission Date: 20141002
  Serious: Yes (Life-Threatening)
  Sender: FDA-Public Use
  Company Number: FR-JNJFOC-20140112719

PATIENT
  Age: 65 Year
  Sex: Male

DRUGS (5)
  1. DORIBAX [Suspect]
     Indication: BACTERIAL SEPSIS
     Route: 041
     Dates: start: 20131128, end: 20140108
  2. TAVANIC [Suspect]
     Indication: BACTERIAL SEPSIS
     Route: 048
     Dates: start: 20131030, end: 20140108
  3. SOTALOL [Concomitant]
     Indication: PRODUCT USED FOR UNKNOWN INDICATION
     Route: 048
  4. TAREG [Concomitant]
     Indication: PRODUCT USED FOR UNKNOWN INDICATION
     Route: 048
  5. PRADAXA [Concomitant]
     Indication: PRODUCT USED FOR UNKNOWN INDICATION
     Route: 048

REACTIONS (2)
  - Agranulocytosis [Unknown]
  - Oedema peripheral [Unknown]
